FAERS Safety Report 15958066 (Version 3)
Quarter: 2019Q2

REPORT INFORMATION
  Report Type: Report from Study
  Country: PL (occurrence: PL)
  Receive Date: 20190213
  Receipt Date: 20190510
  Transmission Date: 20190711
  Serious: Yes (Death)
  Sender: FDA-Public Use
  Company Number: PL-VERTEX PHARMACEUTICALS-2019-001195

PATIENT
  Age: 18 Year
  Sex: Female

DRUGS (10)
  1. PANCREATIN [Concomitant]
     Active Substance: PANCRELIPASE
  2. PANTOPRAZOLE [Concomitant]
     Active Substance: PANTOPRAZOLE
  3. URSODEOXYCHOLIC ACID [Concomitant]
     Active Substance: URSODIOL
  4. ORKAMBI [Suspect]
     Active Substance: IVACAFTOR\LUMACAFTOR
     Indication: CYSTIC FIBROSIS
     Dosage: 2 DOSAGE FORM (200/125 MG EACH), BID
     Route: 048
     Dates: start: 20180910
  5. ESCITALOPRAM [Concomitant]
     Active Substance: ESCITALOPRAM OXALATE
  6. ADEK [Concomitant]
  7. DORNASE ALFA. [Concomitant]
     Active Substance: DORNASE ALFA
  8. SALBUTAMOL [Concomitant]
     Active Substance: ALBUTEROL
  9. BISOPROLOL [Concomitant]
     Active Substance: BISOPROLOL
  10. FLUTICASONE PROPIONATE W/SALMETEROL XINAFOATE [Concomitant]
     Active Substance: FLUTICASONE PROPIONATE\SALMETEROL XINAFOATE

REACTIONS (1)
  - Pulmonary haemorrhage [Fatal]

NARRATIVE: CASE EVENT DATE: 20190204
